FAERS Safety Report 10513071 (Version 4)
Quarter: 2015Q1

REPORT INFORMATION
  Report Type: Spontaneous
  Country: IT (occurrence: IT)
  Receive Date: 20141013
  Receipt Date: 20150115
  Transmission Date: 20150720
  Serious: Yes (Hospitalization)
  Sender: FDA-Public Use
  Company Number: IT-BRISTOL-MYERS SQUIBB COMPANY-21438460

PATIENT
  Age: 81 Year
  Sex: Female

DRUGS (7)
  1. ANTRA [Concomitant]
     Active Substance: OMEPRAZOLE
     Dosage: 20 MG CAPS
     Route: 048
  2. COUMADIN [Suspect]
     Active Substance: WARFARIN SODIUM
     Indication: ATRIAL FIBRILLATION
     Dosage: 7.5 MG, QWK
     Route: 048
     Dates: start: 20140401, end: 20140604
  3. LANOXIN [Concomitant]
     Active Substance: DIGOXIN
     Dosage: 0.125 MG TABLETS
     Route: 048
  4. ZOLOFT [Concomitant]
     Active Substance: SERTRALINE HYDROCHLORIDE
     Dosage: 50 MG TABLETS
     Route: 048
  5. TILDIEM [Concomitant]
     Active Substance: DILTIAZEM HYDROCHLORIDE
     Dosage: 1DF:120 MG TABLETS
  6. LASIX [Concomitant]
     Active Substance: FUROSEMIDE
     Dosage: 25 MG TABLETS
     Route: 048
  7. TRIATEC [Concomitant]
     Active Substance: RAMIPRIL
     Dosage: 5 MG TABLETS
     Route: 048

REACTIONS (2)
  - Ischaemic stroke [Recovering/Resolving]
  - Vascular encephalopathy [Unknown]

NARRATIVE: CASE EVENT DATE: 20140605
